FAERS Safety Report 5830425-9 (Version None)
Quarter: 2008Q3

REPORT INFORMATION
  Report Type: 
  Country: None (occurrence: None)
  Receive Date: 20080801
  Receipt Date: 20080723
  Transmission Date: 20090109
  Serious: Yes (Other)
  Sender: FDA-Public Use
  Company Number: US-JNJFOC-20080706110

PATIENT
  Sex: Female
  Weight: 49.9 kg

DRUGS (6)
  1. REMICADE [Suspect]
     Indication: CROHN'S DISEASE
     Route: 042
  2. ELIDEL [Concomitant]
     Indication: ECZEMA
  3. COLOZAL [Concomitant]
     Indication: CROHN'S DISEASE
  4. TOPROL-XL [Concomitant]
     Indication: BLOOD PRESSURE
  5. LUNESTA [Concomitant]
     Indication: SLEEP DISORDER THERAPY
  6. VITAMIN TAB [Concomitant]

REACTIONS (2)
  - BASAL CELL CARCINOMA [None]
  - ECZEMA [None]
